FAERS Safety Report 13747122 (Version 1)
Quarter: 2017Q3

REPORT INFORMATION
  Report Type: Spontaneous
  Country: MX (occurrence: MX)
  Receive Date: 20170712
  Receipt Date: 20170712
  Transmission Date: 20171127
  Serious: Yes (Death)
  Sender: FDA-Public Use
  Company Number: MX-ASTRAZENECA-2017SE71267

PATIENT
  Age: 65 Year
  Sex: Female

DRUGS (1)
  1. FULVESTRANT. [Suspect]
     Active Substance: FULVESTRANT
     Indication: BREAST CANCER FEMALE
     Route: 030

REACTIONS (2)
  - Hepatic failure [Fatal]
  - Hepatotoxicity [Fatal]
